FAERS Safety Report 16991313 (Version 1)
Quarter: 2019Q4

REPORT INFORMATION
  Report Type: Spontaneous
  Country: US (occurrence: US)
  Receive Date: 20191104
  Receipt Date: 20191104
  Transmission Date: 20200122
  Serious: No
  Sender: FDA-Public Use
  Company Number: US-BAUSCH-BL-2019-059670

PATIENT
  Age: 26 Year

DRUGS (1)
  1. PLENVU [Suspect]
     Active Substance: ASCORBIC ACID\POLYETHYLENE GLYCOL 3350\POTASSIUM CHLORIDE\SODIUM ASCORBATE\SODIUM CHLORIDE\SODIUM SULFATE
     Indication: BOWEL PREPARATION
     Route: 065

REACTIONS (7)
  - Retching [Unknown]
  - Migraine [Unknown]
  - Product taste abnormal [Unknown]
  - Nausea [Unknown]
  - Abdominal distension [Unknown]
  - Feeling abnormal [Unknown]
  - Vomiting projectile [Unknown]
